FAERS Safety Report 7817853-7 (Version None)
Quarter: 2011Q4

REPORT INFORMATION
  Report Type: 
  Country: None (occurrence: None)
  Receive Date: 20111017
  Receipt Date: 20111006
  Transmission Date: 20120403
  Serious: Yes (Hospitalization, Other)
  Sender: FDA-Public Use
  Company Number: US-MERCK-1109USA01912

PATIENT
  Age: 75 Year
  Sex: Female

DRUGS (5)
  1. FOSAMAX [Suspect]
     Route: 048
     Dates: start: 20040628, end: 20060605
  2. FOSAMAX [Suspect]
     Route: 048
     Dates: start: 20090804, end: 20100630
  3. FOSAMAX [Suspect]
     Indication: OSTEOPOROSIS
     Route: 048
     Dates: start: 20030110, end: 20040504
  4. FOSAMAX PLUS D [Suspect]
     Route: 048
     Dates: start: 20061115, end: 20090526
  5. LIPITOR [Concomitant]
     Route: 065

REACTIONS (6)
  - BLOOD CHOLESTEROL INCREASED [None]
  - HYPERTENSION [None]
  - ARTHRALGIA [None]
  - PAIN IN EXTREMITY [None]
  - CARDIAC DISORDER [None]
  - FEMUR FRACTURE [None]
